FAERS Safety Report 4916343-9 (Version None)
Quarter: 2006Q1

REPORT INFORMATION
  Report Type: 
  Country: None (occurrence: None)
  Receive Date: 20060217
  Receipt Date: 20060208
  Transmission Date: 20060701
  Serious: Yes (Hospitalization)
  Sender: FDA-Public Use
  Company Number: US-MERCK-0602USA02634

PATIENT
  Age: 46 Year
  Sex: Female
  Weight: 82 kg

DRUGS (4)
  1. VIOXX [Suspect]
     Indication: EPICONDYLITIS
     Route: 048
     Dates: start: 20030916
  2. LORA TAB [Concomitant]
     Indication: TENDONITIS
     Route: 048
     Dates: start: 20030916
  3. ZOLOFT [Concomitant]
     Route: 048
     Dates: start: 20021209
  4. VIOXX [Suspect]
     Indication: PAIN IN EXTREMITY
     Route: 048
     Dates: start: 20030916

REACTIONS (9)
  - ACUTE MYOCARDIAL INFARCTION [None]
  - APHTHOUS STOMATITIS [None]
  - ARTERIOSCLEROSIS CORONARY ARTERY [None]
  - BACK PAIN [None]
  - HEPATIC LESION [None]
  - INFLUENZA LIKE ILLNESS [None]
  - PALPITATIONS [None]
  - RASH [None]
  - SCIATICA [None]
